FAERS Safety Report 7180064-5 (Version None)
Quarter: 2010Q4

REPORT INFORMATION
  Report Type: 
  Country: None (occurrence: None)
  Receive Date: 20101221
  Receipt Date: 20101216
  Transmission Date: 20110411
  Serious: Yes (Death)
  Sender: FDA-Public Use
  Company Number: US-PFIZER INC-US-WYE-H16765610

PATIENT
  Sex: Female
  Weight: 68 kg

DRUGS (7)
  1. PREMPRO [Suspect]
     Indication: HORMONE REPLACEMENT THERAPY
     Dosage: UNK
  2. PREMARIN [Suspect]
     Indication: HORMONE REPLACEMENT THERAPY
  3. PROVERA [Suspect]
     Indication: HORMONE REPLACEMENT THERAPY
     Dosage: UNK
  4. MEDROXYPROGESTERONE ACETATE [Suspect]
     Indication: HORMONE REPLACEMENT THERAPY
  5. PREMARIN [Suspect]
     Dosage: 0.5 G, THRICE A WEEK
     Dates: end: 20070101
  6. CYCRIN [Suspect]
     Indication: HORMONE REPLACEMENT THERAPY
  7. MEDROXYPROGESTERONE ACETATE [Suspect]

REACTIONS (1)
  - OVARIAN CANCER [None]
